FAERS Safety Report 5924084-4 (Version None)
Quarter: 2008Q4

REPORT INFORMATION
  Report Type: 
  Country: None (occurrence: None)
  Receive Date: 20081020
  Receipt Date: 20081009
  Transmission Date: 20090506
  Serious: Yes (Hospitalization)
  Sender: FDA-Public Use
  Company Number: GB-GILEAD-2008-0018617

PATIENT
  Age: 45 Year
  Sex: Male

DRUGS (3)
  1. TRUVADA [Suspect]
     Indication: HIV INFECTION
  2. DARUNAVIR [Suspect]
  3. RITONAVIR [Suspect]

REACTIONS (2)
  - PERICARDIAL EFFUSION [None]
  - RENAL FAILURE ACUTE [None]
